FAERS Safety Report 10406824 (Version 4)
Quarter: 2014Q3

REPORT INFORMATION
  Report Type: Report from Study
  Country: US (occurrence: US)
  Receive Date: 20140825
  Receipt Date: 20140908
  Transmission Date: 20150326
  Serious: Yes (Other)
  Sender: FDA-Public Use
  Company Number: US-SA-2014SA111755

PATIENT
  Sex: Female
  Weight: 40.82 kg

DRUGS (3)
  1. AUBAGIO [Suspect]
     Active Substance: TERIFLUNOMIDE
     Indication: MULTIPLE SCLEROSIS
     Route: 048
     Dates: start: 20140809, end: 20140818
  2. HYDROCHLOROTHIAZIDE. [Concomitant]
     Active Substance: HYDROCHLOROTHIAZIDE
  3. THYROID THERAPY [Concomitant]
     Active Substance: UNSPECIFIED INGREDIENT

REACTIONS (25)
  - Malignant melanoma [Unknown]
  - Hemiparesis [Unknown]
  - Abdominal pain upper [Not Recovered/Not Resolved]
  - Urine output decreased [Unknown]
  - Multiple sclerosis [Unknown]
  - Pain [Unknown]
  - Chest discomfort [Unknown]
  - Dyspnoea [Unknown]
  - Paraesthesia [Unknown]
  - Constipation [Unknown]
  - Blood pressure increased [Unknown]
  - Hypokinesia [Unknown]
  - Immune system disorder [Unknown]
  - Nausea [Unknown]
  - Hyperreflexia [Unknown]
  - Nephrolithiasis [Unknown]
  - Fatigue [Unknown]
  - Musculoskeletal pain [Unknown]
  - Discomfort [Unknown]
  - Insomnia [Unknown]
  - Fluid retention [Unknown]
  - Hypoaesthesia [Unknown]
  - Dysphagia [Unknown]
  - Confusional state [Unknown]
  - Unevaluable event [Unknown]
